FAERS Safety Report 7769823-5 (Version None)
Quarter: 2011Q3

REPORT INFORMATION
  Report Type: 
  Country: None (occurrence: None)
  Receive Date: 20110922
  Receipt Date: 20110211
  Transmission Date: 20111222
  Serious: No
  Sender: FDA-Public Use
  Company Number: US-ASTRAZENECA-2010SE54186

PATIENT
  Age: 47 Year
  Sex: Female
  Weight: 99.8 kg

DRUGS (8)
  1. SEROQUEL [Suspect]
     Indication: BIPOLAR DISORDER
     Route: 048
     Dates: start: 20060101
  2. VALIUM [Concomitant]
  3. PROZAC [Concomitant]
  4. RELPAX [Concomitant]
  5. PROMETHAZINE [Concomitant]
  6. SEROQUEL [Suspect]
     Route: 048
  7. AMBIEN [Concomitant]
  8. XANAX [Concomitant]

REACTIONS (5)
  - INSOMNIA [None]
  - MANIA [None]
  - ABNORMAL BEHAVIOUR [None]
  - MOOD SWINGS [None]
  - DRUG DOSE OMISSION [None]
